FAERS Safety Report 19007201 (Version 1)
Quarter: 2021Q1

REPORT INFORMATION
  Report Type: Spontaneous
  Country: GB (occurrence: GB)
  Receive Date: 20210315
  Receipt Date: 20210315
  Transmission Date: 20210420
  Serious: Yes (Other)
  Sender: FDA-Public Use
  Company Number: GB-SUN PHARMACEUTICAL INDUSTRIES LTD-2021RR-285724

PATIENT
  Age: 37 Year
  Sex: Female
  Weight: 78.46 kg

DRUGS (2)
  1. CIPROFLOXACIN. [Suspect]
     Active Substance: CIPROFLOXACIN
     Indication: LOWER RESPIRATORY TRACT INFECTION
     Dosage: 2 ON 1ST DAY THEN 1 A DAY FOR 5 DAYS
     Route: 048
     Dates: start: 20180327, end: 20180327
  2. DOXYCYCLINE. [Suspect]
     Active Substance: DOXYCYCLINE
     Indication: BRONCHITIS
     Dosage: 1 TABLET TWICE A DAY
     Route: 048
     Dates: start: 20180321, end: 20180321

REACTIONS (1)
  - Adverse drug reaction [Recovered/Resolved with Sequelae]
